FAERS Safety Report 10206192 (Version 2)
Quarter: 2014Q2

REPORT INFORMATION
  Report Type: Spontaneous
  Country: DE (occurrence: DE)
  Receive Date: 20140530
  Receipt Date: 20140530
  Transmission Date: 20141212
  Serious: Yes (Disabling)
  Sender: FDA-Public Use
  Company Number: DE-ROCHE-1399582

PATIENT
  Age: 17 Year
  Sex: Male

DRUGS (2)
  1. NUTROPIN AQ [Suspect]
     Indication: GROWTH HORMONE DEFICIENCY
     Dosage: 10 MG/2ML
     Route: 065
     Dates: start: 2002
  2. NUTROPIN AQ [Suspect]
     Route: 065
     Dates: start: 201004

REACTIONS (3)
  - Erythromelalgia [Not Recovered/Not Resolved]
  - Blood creatine phosphokinase increased [Not Recovered/Not Resolved]
  - Pain in extremity [Not Recovered/Not Resolved]
